FAERS Safety Report 4873046-7 (Version None)
Quarter: 2005Q4

REPORT INFORMATION
  Report Type: 
  Country: None (occurrence: None)
  Receive Date: 20051201
  Receipt Date: 20050714
  Transmission Date: 20060501
  Serious: No
  Sender: FDA-Public Use
  Company Number: 2005PV000388

PATIENT
  Age: 48 Year
  Sex: Female
  Weight: 70.3075 kg

DRUGS (10)
  1. BYETTA [Suspect]
     Indication: DIABETES MELLITUS NON-INSULIN-DEPENDENT
     Dosage: 5 MCG; BID; SC
     Route: 058
  2. AVANDIA [Concomitant]
  3. ZETIA [Concomitant]
  4. NIASPAN [Concomitant]
  5. CENESTIN [Concomitant]
  6. PAXIL [Concomitant]
  7. UNITHROID [Concomitant]
  8. CYTOMEL [Concomitant]
  9. ACTONEL [Concomitant]
  10. CITRACAL [Concomitant]

REACTIONS (4)
  - DECREASED APPETITE [None]
  - ENERGY INCREASED [None]
  - NAUSEA [None]
  - WEIGHT DECREASED [None]
